FAERS Safety Report 8836929 (Version 1)
Quarter: 2012Q4

REPORT INFORMATION
  Report Type: Spontaneous
  Country: US (occurrence: None)
  Receive Date: 20121011
  Receipt Date: 20121011
  Transmission Date: 20130627
  Serious: No
  Sender: FDA-Public Use
  Company Number: None

PATIENT
  Age: 64 Year
  Sex: Female
  Weight: 75.8 kg

DRUGS (1)
  1. SULFAMETHOXAZOLE/TRIMETHOPRIM [Suspect]
     Dosage: 800mg/160mg BID PO
     Route: 048
     Dates: start: 20120907, end: 20120919

REACTIONS (8)
  - Neutropenia [None]
  - Listless [None]
  - Fatigue [None]
  - Decreased appetite [None]
  - Weight decreased [None]
  - Pain [None]
  - Abdominal pain [None]
  - White blood cell count decreased [None]
